FAERS Safety Report 24041033 (Version 2)
Quarter: 2024Q3

REPORT INFORMATION
  Report Type: Report from Study
  Country: JP (occurrence: JP)
  Receive Date: 20240702
  Receipt Date: 20240907
  Transmission Date: 20241016
  Serious: Yes (Hospitalization, Other)
  Sender: JOHNSON AND JOHNSON
  Company Number: JP-JNJFOC-20240700674

PATIENT
  Age: 70 Year
  Sex: Female

DRUGS (23)
  1. BOSENTAN [Suspect]
     Active Substance: BOSENTAN
     Indication: Prophylaxis
     Dosage: IN THE MORNING
     Route: 048
     Dates: start: 20191106, end: 20191211
  2. BOSENTAN [Suspect]
     Active Substance: BOSENTAN
     Dosage: IN THE MORNING
     Route: 048
     Dates: start: 20191212, end: 20200108
  3. BOSENTAN [Suspect]
     Active Substance: BOSENTAN
     Dosage: IN THE MORNING AND EVENING
     Route: 048
     Dates: start: 20200109, end: 20200205
  4. BOSENTAN [Suspect]
     Active Substance: BOSENTAN
     Dosage: IN THE MORNING AND EVENING
     Route: 048
     Dates: start: 20200206
  5. PREDNISOLONE [Concomitant]
     Active Substance: PREDNISOLONE
     Indication: Systemic scleroderma
     Route: 048
  6. PREDNISOLONE [Concomitant]
     Active Substance: PREDNISOLONE
     Route: 048
  7. PREDNISOLONE [Concomitant]
     Active Substance: PREDNISOLONE
     Dosage: 3-5MG
     Route: 048
  8. PREDNISOLONE [Concomitant]
     Active Substance: PREDNISOLONE
     Route: 048
  9. BERAPROST SODIUM [Concomitant]
     Active Substance: BERAPROST SODIUM
     Indication: Systemic scleroderma
     Route: 048
     Dates: end: 20220831
  10. ICOSAPENT ETHYL [Concomitant]
     Active Substance: ICOSAPENT ETHYL
     Indication: Systemic scleroderma
     Route: 048
  11. ASPIRIN [Concomitant]
     Active Substance: ASPIRIN
     Indication: Systemic scleroderma
     Route: 048
  12. MOSAPRIDE CITRATE DIHYDRATE [Concomitant]
     Active Substance: MOSAPRIDE CITRATE DIHYDRATE
     Indication: Gastrooesophageal reflux disease
     Route: 048
  13. ALLOID G [Concomitant]
     Active Substance: SODIUM ALGINATE
     Indication: Gastrooesophageal reflux disease
     Route: 048
     Dates: end: 20200108
  14. LIMAPROST [Concomitant]
     Active Substance: LIMAPROST
     Indication: Systemic scleroderma
     Route: 048
     Dates: start: 20191108
  15. FIBLAST [ASCORBIC ACID;HESPERIDIN METHYL CHALCONE;RUSCUS ACULEATUS] [Concomitant]
     Indication: Systemic scleroderma
     Dosage: Q.S.
     Route: 061
     Dates: start: 20191121
  16. FIBLAST [ASCORBIC ACID;HESPERIDIN METHYL CHALCONE;RUSCUS ACULEATUS] [Concomitant]
     Dosage: Q.S.
     Route: 061
     Dates: end: 20200205
  17. FIBLAST [ASCORBIC ACID;HESPERIDIN METHYL CHALCONE;RUSCUS ACULEATUS] [Concomitant]
     Dosage: Q.S.
     Route: 061
     Dates: start: 20210218
  18. VONOPRAZAN FUMARATE [Concomitant]
     Active Substance: VONOPRAZAN FUMARATE
     Indication: Gastrooesophageal reflux disease
     Route: 048
     Dates: start: 20191212
  19. ALPROSTADIL ALFADEX [Concomitant]
     Active Substance: ALPROSTADIL ALFADEX
     Indication: Systemic scleroderma
     Dosage: Q.S.
     Route: 061
     Dates: start: 20200109, end: 20200205
  20. CLOBETASOL [Concomitant]
     Active Substance: CLOBETASOL
     Indication: Systemic scleroderma
     Dosage: Q.S.
     Route: 065
     Dates: start: 20200206, end: 20210214
  21. UPTRAVI [Concomitant]
     Active Substance: SELEXIPAG
     Indication: Systemic scleroderma
     Route: 048
     Dates: start: 20210218
  22. UPTRAVI [Concomitant]
     Active Substance: SELEXIPAG
     Dosage: 0.2-0.4MG
     Route: 048
  23. ADCIRCA [Concomitant]
     Active Substance: TADALAFIL
     Indication: Systemic scleroderma
     Route: 048
     Dates: start: 20220901, end: 20230125

REACTIONS (7)
  - Atypical pneumonia [Recovering/Resolving]
  - Scleroderma associated digital ulcer [Recovering/Resolving]
  - Hip arthroplasty [Unknown]
  - Inflammatory marker increased [Unknown]
  - Back pain [Unknown]
  - Off label use [Unknown]
  - Off label use [Unknown]

NARRATIVE: CASE EVENT DATE: 20191106
